FAERS Safety Report 4669000-0 (Version None)
Quarter: 2005Q2

REPORT INFORMATION
  Report Type: 
  Country: None (occurrence: None)
  Receive Date: 20050523
  Receipt Date: 20050513
  Transmission Date: 20051028
  Serious: Yes (Death, Other)
  Sender: FDA-Public Use
  Company Number: US-BRISTOL-MYERS SQUIBB COMPANY-12971354

PATIENT
  Sex: Female

DRUGS (1)
  1. SERZONE [Suspect]
     Dates: start: 19991101, end: 20040801

REACTIONS (2)
  - HEPATIC NEOPLASM MALIGNANT [None]
  - SPLENIC NEOPLASM MALIGNANCY UNSPECIFIED [None]
